FAERS Safety Report 10245949 (Version 1)
Quarter: 2014Q2

REPORT INFORMATION
  Report Type: Spontaneous
  Country: US (occurrence: None)
  Receive Date: 20140616
  Receipt Date: 20140616
  Transmission Date: 20141212
  Serious: Yes (Disabling, Other)
  Sender: FDA-Public Use
  Company Number: None

PATIENT
  Age: 31 Year
  Sex: Female

DRUGS (9)
  1. ETODOLAC [Suspect]
     Indication: PAIN
     Dosage: 200MG?60 CAPSULES?TAKE 1 CAPSULE EVERY 12 HOURS?BY MOUTH
     Route: 048
     Dates: start: 20140320, end: 20140323
  2. ETODOLAC [Suspect]
     Indication: SCOLIOSIS
     Dosage: 200MG?60 CAPSULES?TAKE 1 CAPSULE EVERY 12 HOURS?BY MOUTH
     Route: 048
     Dates: start: 20140320, end: 20140323
  3. ETODOLAC [Suspect]
     Indication: SACROILIITIS
     Dosage: 200MG?60 CAPSULES?TAKE 1 CAPSULE EVERY 12 HOURS?BY MOUTH
     Route: 048
     Dates: start: 20140320, end: 20140323
  4. ADDERALL XR [Concomitant]
  5. CITALOPRAM [Concomitant]
  6. DIAZEPAM (CALCIUM) [Concomitant]
  7. ALEVE [Concomitant]
  8. FISH OIL [Concomitant]
  9. VITAMIN E [Concomitant]

REACTIONS (15)
  - Abdominal pain upper [None]
  - Haematochezia [None]
  - Nausea [None]
  - Haematemesis [None]
  - Musculoskeletal stiffness [None]
  - Weight increased [None]
  - Flatulence [None]
  - Headache [None]
  - Mood altered [None]
  - Frequent bowel movements [None]
  - Rash [None]
  - Pain of skin [None]
  - Dizziness [None]
  - Balance disorder [None]
  - Drug hypersensitivity [None]
